FAERS Safety Report 6881315-4 (Version None)
Quarter: 2010Q3

REPORT INFORMATION
  Report Type: 
  Country: None (occurrence: None)
  Receive Date: 20100728
  Receipt Date: 20100722
  Transmission Date: 20110219
  Serious: Yes (Other)
  Sender: FDA-Public Use
  Company Number: US-AMGEN-QUU426313

PATIENT
  Sex: Female

DRUGS (3)
  1. NPLATE [Suspect]
     Indication: IDIOPATHIC THROMBOCYTOPENIC PURPURA
     Dates: start: 20091125
  2. FOLIC ACID [Concomitant]
  3. MULTI-VITAMINS [Concomitant]

REACTIONS (3)
  - PLATELET COUNT DECREASED [None]
  - RHINORRHOEA [None]
  - VIRAL INFECTION [None]
